FAERS Safety Report 10724209 (Version 1)
Quarter: 2015Q1

REPORT INFORMATION
  Report Type: Spontaneous
  Country: US (occurrence: None)
  Receive Date: 20150116
  Receipt Date: 20150116
  Transmission Date: 20150721
  Serious: Yes (Disabling, Other)
  Sender: FDA-Public Use
  Company Number: None

PATIENT
  Age: 42 Year
  Sex: Female
  Weight: 117.03 kg

DRUGS (1)
  1. HYDROCORTISONE. [Suspect]
     Active Substance: HYDROCORTISONE
     Indication: ADDISON^S DISEASE
     Dosage: 2 TABLETS THREE TIMES DAILY
     Route: 048

REACTIONS (14)
  - Product quality issue [None]
  - Atrial fibrillation [None]
  - International normalised ratio increased [None]
  - Fatigue [None]
  - Supraventricular tachycardia [None]
  - Pain [None]
  - Anxiety [None]
  - Adrenocortical insufficiency acute [None]
  - Product substitution issue [None]
  - Feeling abnormal [None]
  - Dizziness postural [None]
  - Thirst [None]
  - Salt craving [None]
  - Tachycardia [None]

NARRATIVE: CASE EVENT DATE: 20150111
